FAERS Safety Report 9995213 (Version 1)
Quarter: 2014Q1

REPORT INFORMATION
  Report Type: Spontaneous
  Country: GB (occurrence: None)
  Receive Date: 20140306
  Receipt Date: 20140306
  Transmission Date: 20141002
  Serious: Yes (Other)
  Sender: FDA-Public Use
  Company Number: IMP_07493_2014

PATIENT
  Age: 60 Year
  Sex: Female

DRUGS (3)
  1. OMEPRAZOLE (OMEPRAZOLE) [Suspect]
     Indication: GASTROOESOPHAGEAL REFLUX DISEASE
     Dosage: DF
  2. DOMPRERIDONE (DOMPERIDONE) [Suspect]
     Indication: GASTROOESOPHAGEAL REFLUX DISEASE
     Dosage: DF
  3. CHEMOTHERAPEUTICS [Concomitant]

REACTIONS (1)
  - Subacute cutaneous lupus erythematosus [None]
